FAERS Safety Report 9909683 (Version 1)
Quarter: 2014Q1

REPORT INFORMATION
  Report Type: Spontaneous
  Country: IN (occurrence: IN)
  Receive Date: 20140219
  Receipt Date: 20140219
  Transmission Date: 20141002
  Serious: Yes (Other)
  Sender: FDA-Public Use
  Company Number: IN-ACTAVIS-2014-02376

PATIENT
  Age: 18 Year
  Sex: Male

DRUGS (1)
  1. QUETIAPINE (UNKNOWN) [Suspect]
     Indication: SCHIZOPHRENIA, PARANOID TYPE
     Dosage: 100 MG, BID
     Route: 065

REACTIONS (1)
  - Oculogyric crisis [Recovered/Resolved]
